FAERS Safety Report 4890373-8 (Version None)
Quarter: 2005Q4

REPORT INFORMATION
  Report Type: 
  Country: None (occurrence: None)
  Receive Date: 20051220
  Receipt Date: 20051115
  Transmission Date: 20060501
  Serious: Yes (Other)
  Sender: FDA-Public Use
  Company Number: 425145

PATIENT
  Age: 60 Year
  Sex: Female
  Weight: 64.4 kg

DRUGS (2)
  1. BONIVA [Suspect]
     Indication: OSTEOPENIA
     Dosage: 150 MG 1 PER MONTH ORAL
     Route: 048
     Dates: start: 20051111, end: 20051111
  2. CALCIUM (CALCIUM) [Concomitant]

REACTIONS (12)
  - ABDOMINAL PAIN UPPER [None]
  - ARTHRALGIA [None]
  - BACK PAIN [None]
  - BONE PAIN [None]
  - CHILLS [None]
  - DIARRHOEA [None]
  - EYE SWELLING [None]
  - EYELID OEDEMA [None]
  - MYALGIA [None]
  - SKIN BURNING SENSATION [None]
  - STOMACH DISCOMFORT [None]
  - VOMITING [None]
